FAERS Safety Report 19849721 (Version 3)
Quarter: 2021Q4

REPORT INFORMATION
  Report Type: Report from Study
  Country: US (occurrence: US)
  Receive Date: 20210917
  Receipt Date: 20211202
  Transmission Date: 20220303
  Serious: Yes (Hospitalization)
  Sender: FDA-Public Use
  Company Number: NVSC2021US209109

PATIENT
  Age: 19 Year
  Sex: Male

DRUGS (10)
  1. RUXOLITINIB [Suspect]
     Active Substance: RUXOLITINIB
     Indication: Acute lymphocytic leukaemia
     Dosage: 85 MG, BIDX14 DAYS
     Route: 065
     Dates: start: 20210622
  2. MERCAPTOPURINE [Suspect]
     Active Substance: MERCAPTOPURINE
     Indication: Acute lymphocytic leukaemia
     Dosage: 125MG X 5 DAYS/WEEK; 150MG X 2 DAYS/WEEK
     Route: 048
     Dates: start: 20210622, end: 20210903
  3. MERCAPTOPURINE [Suspect]
     Active Substance: MERCAPTOPURINE
     Dosage: 50 PERCENT LESS DOSE (62.5MG X 5 DAYS/WEEK; 75MG X 2 DAYS/WEEK
     Route: 048
     Dates: start: 20210914
  4. METHOTREXATE [Suspect]
     Active Substance: METHOTREXATE
     Indication: Acute lymphocytic leukaemia
     Dosage: 35 MG, QW
     Route: 048
     Dates: start: 20210629, end: 20210903
  5. METHOTREXATE [Suspect]
     Active Substance: METHOTREXATE
     Dosage: 50 PERCENT LESS DOSE (17.5 MILLIGRAM, WEEKLY)
     Route: 048
     Dates: start: 20210914
  6. VINCRISTINE [Suspect]
     Active Substance: VINCRISTINE
     Indication: Acute lymphocytic leukaemia
     Dosage: 2 MG, ONCE
     Route: 042
     Dates: start: 20210622
  7. PREDNISONE [Suspect]
     Active Substance: PREDNISONE
     Indication: Acute lymphocytic leukaemia
     Dosage: 35 MG, BIDX 5 DAYS
     Route: 048
     Dates: start: 20210622
  8. SULFAMETHOXAZOLE AND TRIMETHOPRIM [Concomitant]
     Active Substance: SULFAMETHOXAZOLE\TRIMETHOPRIM
     Indication: Prophylaxis
     Dosage: 800 - 160 MG BIDX 3 DAYS
     Route: 048
     Dates: start: 201707
  9. VALTREX [Concomitant]
     Active Substance: VALACYCLOVIR HYDROCHLORIDE
     Indication: Prophylaxis
     Dosage: 500 MG, BID
     Route: 048
     Dates: start: 20200528
  10. RIVAROXABAN [Concomitant]
     Active Substance: RIVAROXABAN
     Indication: Anticoagulant therapy
     Dosage: 10 MG, QD
     Route: 048
     Dates: start: 20210619

REACTIONS (1)
  - Febrile neutropenia [Recovered/Resolved]

NARRATIVE: CASE EVENT DATE: 20210903
